FAERS Safety Report 13817181 (Version 2)
Quarter: 2018Q1

REPORT INFORMATION
  Report Type: Report from Study
  Country: BR (occurrence: BR)
  Receive Date: 20170731
  Receipt Date: 20180219
  Transmission Date: 20180508
  Serious: Yes (Other)
  Sender: FDA-Public Use
  Company Number: PHHY2017BR110295

PATIENT
  Sex: Male
  Weight: 65 kg

DRUGS (1)
  1. EXELON PATCH [Suspect]
     Active Substance: RIVASTIGMINE
     Indication: DEMENTIA ALZHEIMER^S TYPE
     Dosage: 9.5 MG, QD PATCH 10 (CM2)
     Route: 062

REACTIONS (7)
  - Fatigue [Unknown]
  - Deafness [Unknown]
  - Disturbance in attention [Unknown]
  - Muscular weakness [Unknown]
  - Feeling abnormal [Unknown]
  - Fall [Unknown]
  - Body height decreased [Unknown]
